FAERS Safety Report 17332387 (Version 1)
Quarter: 2020Q1

REPORT INFORMATION
  Report Type: Spontaneous
  Country: FR (occurrence: FR)
  Receive Date: 20200127
  Receipt Date: 20200127
  Transmission Date: 20200409
  Serious: Yes (Other)
  Sender: FDA-Public Use
  Company Number: FR-ABBVIE-20K-056-3249353-00

PATIENT
  Age: 70 Year
  Sex: Female

DRUGS (2)
  1. MORPHINE [Concomitant]
     Active Substance: MORPHINE
     Indication: PRODUCT USED FOR UNKNOWN INDICATION
  2. VENCLYXTO [Suspect]
     Active Substance: VENETOCLAX
     Indication: BONE CANCER
     Route: 048

REACTIONS (5)
  - Bone cancer [Unknown]
  - Diarrhoea [Unknown]
  - Off label use [Unknown]
  - Product size issue [Unknown]
  - Dysphagia [Unknown]
